FAERS Safety Report 25250143 (Version 1)
Quarter: 2025Q2

REPORT INFORMATION
  Report Type: Spontaneous
  Country: CH (occurrence: CH)
  Receive Date: 20250429
  Receipt Date: 20250429
  Transmission Date: 20250716
  Serious: Yes (Life-Threatening, Hospitalization, Other)
  Sender: BRACCO
  Company Number: None

PATIENT
  Age: 51 Year
  Sex: Female

DRUGS (30)
  1. CEFTRIAXONE [Suspect]
     Active Substance: CEFTRIAXONE
     Indication: Urinary tract infection
     Dates: start: 20230505, end: 20230506
  2. FLUCONAZOLE [Suspect]
     Active Substance: FLUCONAZOLE
     Dates: start: 20230502, end: 20230502
  3. IOMERON [Suspect]
     Active Substance: IOMEPROL
     Dates: start: 20230429, end: 20230429
  4. IOMERON [Suspect]
     Active Substance: IOMEPROL
     Dates: start: 20230729, end: 20230729
  5. PEMBROLIZUMAB [Suspect]
     Active Substance: PEMBROLIZUMAB
     Indication: Cervix carcinoma
  6. PIPERACILLIN AND TAZOBACTAM [Suspect]
     Active Substance: PIPERACILLIN SODIUM\TAZOBACTAM SODIUM
     Dates: start: 20230430, end: 20230504
  7. FOLIC ACID [Concomitant]
     Active Substance: FOLIC ACID
     Dosage: 5 MG, QD
  8. BUTYLSCOPOLAMINE [Concomitant]
     Active Substance: BUTYLSCOPOLAMINE
  9. CLEMASTINE [Concomitant]
     Active Substance: CLEMASTINE
     Dates: start: 20230501, end: 20230504
  10. CODEINE [Concomitant]
     Active Substance: CODEINE
  11. DOMPERIDONE [Concomitant]
     Active Substance: DOMPERIDONE
  12. DUPHALAC [Concomitant]
     Active Substance: LACTULOSE
     Dosage: 20 ML, QD
  13. DUPHALAC [Concomitant]
     Active Substance: LACTULOSE
     Dosage: 20 ML, BID
     Route: 048
  14. ELIQUIS [Concomitant]
     Active Substance: APIXABAN
     Dosage: 5 MG, BID
  15. ERTAPENEM [Concomitant]
     Active Substance: ERTAPENEM
     Dosage: 1 MG, QD
     Route: 042
     Dates: start: 20230507
  16. EUTHYROX [Concomitant]
     Active Substance: LEVOTHYROXINE SODIUM
     Dosage: 100 ?G, QD
  17. EUTHYROX [Concomitant]
     Active Substance: LEVOTHYROXINE SODIUM
     Dosage: 50 ?G, QD
  18. HEPARIN [Concomitant]
     Active Substance: HEPARIN SODIUM
     Route: 042
  19. HYDROCODONE [Concomitant]
     Active Substance: HYDROCODONE
  20. POTASSIUM BICARBONATE\POTASSIUM CITRATE [Concomitant]
     Active Substance: POTASSIUM BICARBONATE\POTASSIUM CITRATE
     Dosage: 30 MMOL, BID
     Route: 048
  21. POTASSIUM BICARBONATE\POTASSIUM CITRATE [Concomitant]
     Active Substance: POTASSIUM BICARBONATE\POTASSIUM CITRATE
     Dosage: 60 MMOL, BID
     Dates: end: 20230731
  22. LORAZEPAM [Concomitant]
     Active Substance: LORAZEPAM
  23. POLYETHYLENE GLYCOLS [Concomitant]
     Active Substance: POLYETHYLENE GLYCOLS
  24. MAGNESIUM [Concomitant]
     Active Substance: MAGNESIUM
  25. METAMIZOLE [Concomitant]
     Active Substance: METAMIZOLE
  26. NOVORAPID [Concomitant]
     Active Substance: INSULIN ASPART
     Route: 058
  27. ONDANSETRON [Concomitant]
     Active Substance: ONDANSETRON
  28. PANTOPRAZOLE SODIUM [Concomitant]
     Active Substance: PANTOPRAZOLE SODIUM
     Dosage: 40 MG, QD
  29. ACETAMINOPHEN [Concomitant]
     Active Substance: ACETAMINOPHEN
  30. Valverde Schlaf [Concomitant]

REACTIONS (2)
  - Anaemia [Recovering/Resolving]
  - Autoimmune haemolytic anaemia [Recovering/Resolving]

NARRATIVE: CASE EVENT DATE: 20230506
